FAERS Safety Report 25220841 (Version 1)
Quarter: 2025Q2

REPORT INFORMATION
  Report Type: Spontaneous
  Country: FR (occurrence: FR)
  Receive Date: 20250421
  Receipt Date: 20250421
  Transmission Date: 20250716
  Serious: Yes (Hospitalization)
  Sender: TEVA
  Company Number: None

PATIENT
  Age: 36 Year
  Sex: Female
  Weight: 56.45 kg

DRUGS (12)
  1. AZITHROMYCIN [Suspect]
     Active Substance: AZITHROMYCIN
     Indication: Chronic sinusitis
     Route: 048
     Dates: start: 20230418, end: 20230530
  2. AZITHROMYCIN [Suspect]
     Active Substance: AZITHROMYCIN
     Indication: Chronic sinusitis
     Route: 065
     Dates: start: 2024
  3. BISOPROLOL FUMARATE [Concomitant]
     Active Substance: BISOPROLOL FUMARATE
     Indication: Hypertension
     Route: 048
  4. SOLU-MEDROL [Concomitant]
     Active Substance: METHYLPREDNISOLONE SODIUM SUCCINATE
     Indication: Hypersensitivity
     Route: 042
  5. TOBRAMYCIN [Concomitant]
     Active Substance: TOBRAMYCIN
     Indication: Chronic sinusitis
     Route: 042
  6. PANTOPRAZOLE [Concomitant]
     Active Substance: PANTOPRAZOLE
     Indication: Product used for unknown indication
     Route: 065
     Dates: start: 20250128
  7. EBASTINE [Concomitant]
     Active Substance: EBASTINE
     Indication: Hypersensitivity
     Route: 048
  8. ATARAX [Concomitant]
     Active Substance: HYDROXYZINE HYDROCHLORIDE
     Indication: Product used for unknown indication
     Dosage: EVENING
     Route: 048
  9. HYDROXYCHLOROQUINE SULFATE [Concomitant]
     Active Substance: HYDROXYCHLOROQUINE SULFATE
     Indication: Chronic sinusitis
     Route: 065
     Dates: start: 20250128, end: 20250128
  10. IVERMECTIN [Concomitant]
     Active Substance: IVERMECTIN
     Indication: Chronic sinusitis
     Route: 065
     Dates: start: 20250128, end: 20250128
  11. CELESTENE [Concomitant]
     Indication: Urticaria
     Route: 065
  12. LOXEN [Concomitant]
     Indication: Hypertension
     Dosage: 20MG MORNING AND EVENING: SCORED TABLET
     Route: 048

REACTIONS (1)
  - Pancreatitis acute [Recovered/Resolved]

NARRATIVE: CASE EVENT DATE: 20250212
